FAERS Safety Report 6640520-2 (Version None)
Quarter: 2010Q1

REPORT INFORMATION
  Report Type: 
  Country: None (occurrence: None)
  Receive Date: 20100318
  Receipt Date: 20100311
  Transmission Date: 20100710
  Serious: Yes (Hospitalization, Other)
  Sender: FDA-Public Use
  Company Number: US-MERCK-0901USA03026

PATIENT
  Age: 70 Year
  Sex: Female

DRUGS (1)
  1. FOSAMAX [Suspect]
     Indication: OSTEOPOROSIS
     Route: 048
     Dates: start: 19990101, end: 20070701

REACTIONS (32)
  - ABSCESS [None]
  - ARTHRALGIA [None]
  - CERVICAL VERTEBRAL FRACTURE [None]
  - CHANGE OF BOWEL HABIT [None]
  - DECREASED APPETITE [None]
  - DEHYDRATION [None]
  - DENTAL CARIES [None]
  - DEPRESSION [None]
  - DIVERTICULUM [None]
  - DRUG INTOLERANCE [None]
  - DYSPHAGIA [None]
  - FISTULA [None]
  - FISTULA DISCHARGE [None]
  - GASTROINTESTINAL DISORDER [None]
  - GASTROOESOPHAGEAL REFLUX DISEASE [None]
  - GINGIVAL BLEEDING [None]
  - GINGIVAL INFECTION [None]
  - HYPOGLYCAEMIA [None]
  - HYPOKALAEMIA [None]
  - HYPOMAGNESAEMIA [None]
  - IMPAIRED HEALING [None]
  - ODYNOPHAGIA [None]
  - ORAL INFECTION [None]
  - OSTEONECROSIS [None]
  - PARKINSON'S DISEASE [None]
  - PERIODONTITIS [None]
  - PRESYNCOPE [None]
  - STOMATITIS [None]
  - TOOTH ABSCESS [None]
  - TOOTH FRACTURE [None]
  - TOOTH INFECTION [None]
  - TYPE 2 DIABETES MELLITUS [None]
